FAERS Safety Report 5344141-3 (Version None)
Quarter: 2007Q2

REPORT INFORMATION
  Report Type: 
  Country: None (occurrence: None)
  Receive Date: 20070604
  Receipt Date: 20070522
  Transmission Date: 20071010
  Serious: Yes (Hospitalization)
  Sender: FDA-Public Use
  Company Number: JP-MERCK-0705USA05110

PATIENT
  Age: 85 Year
  Sex: Female

DRUGS (6)
  1. FOSAMAX [Suspect]
     Indication: OSTEOPOROSIS
     Route: 048
     Dates: start: 20070213, end: 20070514
  2. ELCITONIN [Concomitant]
     Indication: OSTEOPOROSIS
     Route: 030
  3. RINLAXER [Concomitant]
     Indication: PAIN IN EXTREMITY
     Route: 048
  4. TAKEPRON [Concomitant]
     Route: 048
  5. EXCELASE [Concomitant]
     Indication: GASTRITIS
     Route: 048
  6. GASMOTIN [Concomitant]
     Indication: GASTRITIS
     Route: 048

REACTIONS (5)
  - ANOREXIA [None]
  - BACK PAIN [None]
  - MALAISE [None]
  - PAIN IN EXTREMITY [None]
  - THROMBOCYTOPENIA [None]
